FAERS Safety Report 18899236 (Version 2)
Quarter: 2021Q1

REPORT INFORMATION
  Report Type: Spontaneous
  Country: IL (occurrence: IL)
  Receive Date: 20210216
  Receipt Date: 20210218
  Transmission Date: 20210420
  Serious: Yes (Other)
  Sender: FDA-Public Use
  Company Number: IL-TEVA-2021-IL-1880832

PATIENT
  Age: 75 Year
  Sex: Female

DRUGS (1)
  1. METFORMIN [Suspect]
     Active Substance: METFORMIN HYDROCHLORIDE
     Route: 065

REACTIONS (14)
  - Myocardial infarction [Unknown]
  - Abdominal discomfort [Unknown]
  - Abdominal distension [Unknown]
  - Tooth injury [Unknown]
  - Product substitution issue [Unknown]
  - Gastrooesophageal reflux disease [Unknown]
  - Product shape issue [Unknown]
  - Regurgitation [Unknown]
  - Blood glucose increased [Unknown]
  - Suffocation feeling [Unknown]
  - Gastrointestinal injury [Unknown]
  - Drug ineffective [Unknown]
  - Dyspepsia [Unknown]
  - Abdominal pain upper [Unknown]
